FAERS Safety Report 9764551 (Version 3)
Quarter: 2014Q3

REPORT INFORMATION
  Report Type: Spontaneous
  Country: FR (occurrence: FR)
  Receive Date: 20131217
  Receipt Date: 20140703
  Transmission Date: 20150326
  Serious: Yes (Hospitalization)
  Sender: FDA-Public Use
  Company Number: FR-EMCURE-000719

PATIENT
  Age: 40 Year
  Sex: Male

DRUGS (12)
  1. CYTARABINE/CYTARABINE HYDROCHLORIDE/CYTARABINE OCFOSFATE [Suspect]
     Active Substance: CYTARABINE
     Indication: LYMPHOMA
     Route: 042
     Dates: start: 20131005, end: 20131008
  2. ZELITREX [Concomitant]
     Active Substance: VALACYCLOVIR HYDROCHLORIDE
     Dates: start: 20131001
  3. ALKERAN [Suspect]
     Active Substance: MELPHALAN
     Indication: LYMPHOMA
     Route: 042
     Dates: start: 20131009
  4. BLEOMYCIN BELLON [Suspect]
     Active Substance: BLEOMYCIN SULFATE
     Indication: LYMPHOMA
     Route: 042
     Dates: start: 20130821
  5. BICNU [Suspect]
     Active Substance: CARMUSTINE
     Indication: LYMPHOMA
     Route: 042
     Dates: start: 20131004
  6. BACTRIM [Concomitant]
     Active Substance: SULFAMETHOXAZOLE\TRIMETHOPRIM
     Dates: start: 20131001
  7. PREDNISONE. [Concomitant]
     Active Substance: PREDNISONE
     Indication: LYMPHOMA
     Dates: start: 20130814, end: 20130827
  8. DOXORUBICIN [Concomitant]
     Active Substance: DOXORUBICIN
     Indication: LYMPHOMA
     Dates: start: 20130814
  9. ETOPOPHOS [Suspect]
     Active Substance: ETOPOSIDE PHOSPHATE
     Indication: LYMPHOMA
     Route: 042
     Dates: start: 20131005, end: 20131008
  10. NATULAN [Suspect]
     Active Substance: PROCARBAZINE HYDROCHLORIDE
     Indication: LYMPHOMA
     Route: 048
     Dates: start: 20130910, end: 20130916
  11. ENDOXAN [Suspect]
     Active Substance: CYCLOPHOSPHAMIDE
     Indication: LYMPHOMA
     Route: 042
     Dates: start: 20130814
  12. VINCRISTINE [Suspect]
     Active Substance: VINCRISTINE
     Indication: LYMPHOMA
     Route: 042
     Dates: start: 20130821

REACTIONS (4)
  - Organising pneumonia [Recovered/Resolved]
  - Pancytopenia [None]
  - Staphylococcal sepsis [None]
  - Pleural effusion [None]

NARRATIVE: CASE EVENT DATE: 20131023
